FAERS Safety Report 10079009 (Version 2)
Quarter: 2014Q2

REPORT INFORMATION
  Report Type: Spontaneous
  Country: US (occurrence: US)
  Receive Date: 20140415
  Receipt Date: 20140417
  Transmission Date: 20141212
  Serious: No
  Sender: FDA-Public Use
  Company Number: US-009507513-1404USA008538

PATIENT
  Age: 67 Year
  Sex: Female

DRUGS (2)
  1. DULERA [Suspect]
     Indication: ASTHMA
     Dosage: 2 PUFFS TWICE A DAY
     Route: 055
     Dates: start: 20140411
  2. DULERA [Suspect]
     Indication: EMPHYSEMA

REACTIONS (3)
  - Dyspnoea [Not Recovered/Not Resolved]
  - Underdose [Unknown]
  - Product quality issue [Unknown]
